FAERS Safety Report 14368612 (Version 1)
Quarter: 2018Q1

REPORT INFORMATION
  Report Type: Spontaneous
  Country: US (occurrence: US)
  Receive Date: 20180109
  Receipt Date: 20180109
  Transmission Date: 20180509
  Serious: No
  Sender: FDA-Public Use
  Company Number: US-SA-2017SA198641

PATIENT
  Age: 72 Year
  Sex: Female

DRUGS (12)
  1. DUPIXENT [Suspect]
     Active Substance: DUPILUMAB
     Indication: DERMATITIS ATOPIC
     Route: 058
     Dates: start: 20170814
  2. REMICADE [Concomitant]
     Active Substance: INFLIXIMAB
     Route: 065
  3. DESOWEN [Concomitant]
     Active Substance: DESONIDE
     Route: 065
  4. ELIDEL [Concomitant]
     Active Substance: PIMECROLIMUS
     Route: 065
  5. ELOCON [Concomitant]
     Active Substance: MOMETASONE FUROATE
     Route: 065
  6. HYDROXYZ PAM [Concomitant]
     Active Substance: HYDROXYZINE PAMOATE
     Route: 065
  7. DOVONEX [Concomitant]
     Active Substance: CALCIPOTRIENE
     Route: 065
  8. CARMOL [Concomitant]
     Route: 065
  9. CELLCEPT [Concomitant]
     Active Substance: MYCOPHENOLATE MOFETIL\MYCOPHENOLATE MOFETIL HYDROCHLORIDE
     Route: 065
  10. PROTOPIC [Concomitant]
     Active Substance: TACROLIMUS
     Route: 065
  11. CLOBETASOL [Concomitant]
     Active Substance: CLOBETASOL
     Route: 065
  12. DIPROLENE [Concomitant]
     Active Substance: BETAMETHASONE DIPROPIONATE
     Route: 065

REACTIONS (1)
  - Urticaria [Unknown]

NARRATIVE: CASE EVENT DATE: 20171009
